FAERS Safety Report 7417489-6 (Version None)
Quarter: 2011Q2

REPORT INFORMATION
  Report Type: 
  Country: None (occurrence: None)
  Receive Date: 20110414
  Receipt Date: 20110414
  Transmission Date: 20111010
  Serious: Yes (Life-Threatening, Hospitalization)
  Sender: FDA-Public Use
  Company Number: None

PATIENT
  Sex: Male
  Weight: 23 kg

DRUGS (1)
  1. ALCOHOL PREP PAD TRIAD [Suspect]
     Indication: STEM CELL TRANSPLANT
     Dates: start: 20101015, end: 20110108

REACTIONS (3)
  - PRODUCT CONTAMINATION [None]
  - INFECTION IN AN IMMUNOCOMPROMISED HOST [None]
  - BACTERIAL SEPSIS [None]
